FAERS Safety Report 14788415 (Version 2)
Quarter: 2018Q3

REPORT INFORMATION
  Report Type: Report from Study
  Country: US (occurrence: US)
  Receive Date: 20180423
  Receipt Date: 20180704
  Transmission Date: 20181010
  Serious: Yes (Hospitalization)
  Sender: FDA-Public Use
  Company Number: PHEH2018US014474

PATIENT
  Sex: Female

DRUGS (1)
  1. KISQALI FEMARA CO?PACK [Suspect]
     Active Substance: LETROZOLE\RIBOCICLIB
     Indication: PRODUCT USED FOR UNKNOWN INDICATION
     Dosage: UNK
     Route: 065
     Dates: start: 20180303

REACTIONS (4)
  - Fatigue [Unknown]
  - Peripheral swelling [Recovered/Resolved]
  - Gingival bleeding [Unknown]
  - Skin haemorrhage [Unknown]
